FAERS Safety Report 21308617 (Version 1)
Quarter: 2022Q3

REPORT INFORMATION
  Report Type: Spontaneous
  Country: US (occurrence: None)
  Receive Date: 20220908
  Receipt Date: 20220908
  Transmission Date: 20221027
  Serious: No
  Sender: FDA-Public Use
  Company Number: None

PATIENT
  Age: 72 Year
  Sex: Female
  Weight: 29.48 kg

DRUGS (9)
  1. CAPECITABINE [Suspect]
     Active Substance: CAPECITABINE
     Dosage: FREQUENCY : TWICE A DAY;?
     Route: 048
     Dates: start: 202208, end: 20220906
  2. DICLOFENAC [Concomitant]
     Active Substance: DICLOFENAC
  3. DICLOFENAC [Concomitant]
     Active Substance: DICLOFENAC
  4. FLUOROURACIL [Concomitant]
     Active Substance: FLUOROURACIL
  5. ALBUTEROL\IPRATROPIUM [Concomitant]
     Active Substance: ALBUTEROL\IPRATROPIUM
  6. PLAQUENIL [Concomitant]
  7. PREDNISONE [Concomitant]
     Active Substance: PREDNISONE
  8. VENTOLIN [Concomitant]
     Active Substance: ALBUTEROL SULFATE
  9. XANAX [Concomitant]
     Active Substance: ALPRAZOLAM

REACTIONS (6)
  - Platelet count decreased [None]
  - Dehydration [None]
  - Diarrhoea [None]
  - Nausea [None]
  - Haematochezia [None]
  - Therapy cessation [None]

NARRATIVE: CASE EVENT DATE: 20220905
